FAERS Safety Report 9020604 (Version 1)
Quarter: 2013Q1

REPORT INFORMATION
  Report Type: Spontaneous
  Country: US (occurrence: US)
  Receive Date: 20130119
  Receipt Date: 20130119
  Transmission Date: 20140127
  Serious: No
  Sender: FDA-Public Use
  Company Number: US-ALLERGAN-1206975US

PATIENT
  Age: 39 Year
  Sex: Female

DRUGS (3)
  1. BOTOX COSMETIC [Suspect]
     Indication: SKIN WRINKLING
     Dosage: UNK
     Route: 030
  2. CARISOPRODOL [Concomitant]
     Indication: MUSCLE RELAXANT THERAPY
     Dosage: UNK
     Route: 048
  3. ALLERGY MEDICATION [Concomitant]
     Indication: SEASONAL ALLERGY
     Dosage: UNK
     Route: 048

REACTIONS (7)
  - Arthralgia [Unknown]
  - Joint swelling [Unknown]
  - Facial paresis [Unknown]
  - Extraocular muscle paresis [Unknown]
  - Headache [Not Recovered/Not Resolved]
  - Eyelid ptosis [Unknown]
  - Eyelid ptosis [Unknown]
